FAERS Safety Report 25144612 (Version 2)
Quarter: 2025Q2

REPORT INFORMATION
  Report Type: Spontaneous
  Country: ES (occurrence: ES)
  Receive Date: 20250401
  Receipt Date: 20250410
  Transmission Date: 20250716
  Serious: Yes (Other)
  Sender: AMERICAN REGENT
  Company Number: ES-AMERICAN REGENT INC-2025001346

PATIENT
  Age: 44 Year
  Sex: Female
  Weight: 65 kg

DRUGS (1)
  1. FERINJECT [Suspect]
     Active Substance: FERRIC CARBOXYMALTOSE
     Indication: Anaemia
     Route: 042
     Dates: start: 20220908

REACTIONS (4)
  - Dysphonia [Recovered/Resolved]
  - Rash [Recovered/Resolved]
  - Pruritus [Recovered/Resolved]
  - Dizziness [Recovered/Resolved]

NARRATIVE: CASE EVENT DATE: 20220908
